FAERS Safety Report 5114493-8 (Version None)
Quarter: 2006Q3

REPORT INFORMATION
  Report Type: 
  Country: None (occurrence: None)
  Receive Date: 20060926
  Receipt Date: 20060920
  Transmission Date: 20061208
  Serious: Yes (Hospitalization)
  Sender: FDA-Public Use
  Company Number: US-BRACCO-BDI-008653

PATIENT
  Sex: Female

DRUGS (1)
  1. ISOVUE-128 [Suspect]
     Route: 042
     Dates: start: 20060919, end: 20060919

REACTIONS (2)
  - BRONCHOSPASM [None]
  - PRURITUS [None]
